FAERS Safety Report 4628153-0 (Version None)
Quarter: 2005Q2

REPORT INFORMATION
  Report Type: 
  Country: None (occurrence: None)
  Receive Date: 20050401
  Receipt Date: 20050329
  Transmission Date: 20051028
  Serious: Yes (Death, Hospitalization)
  Sender: FDA-Public Use
  Company Number: 05-03-0461

PATIENT
  Age: 35 Year
  Sex: Male
  Weight: 94.3482 kg

DRUGS (10)
  1. CLOZAPINE [Suspect]
     Indication: ABNORMAL BEHAVIOUR
     Dosage: 100MG BID ORAL
     Route: 048
     Dates: start: 20040601, end: 20050301
  2. CLOZAPINE [Suspect]
     Indication: DEMENTIA
     Dosage: 100MG BID ORAL
     Route: 048
     Dates: start: 20040601, end: 20050301
  3. FLUVOXAMINE MALEATE [Concomitant]
  4. SEROQUEL [Concomitant]
  5. GABAPENTIN [Concomitant]
  6. LUVOX [Concomitant]
  7. TOPAMAX [Concomitant]
  8. METOPROLOL TARTRATE [Concomitant]
  9. PREVACID [Concomitant]
  10. TRAZODONE HCL [Concomitant]

REACTIONS (6)
  - CEREBRAL INFARCTION [None]
  - DEPRESSED LEVEL OF CONSCIOUSNESS [None]
  - GRAND MAL CONVULSION [None]
  - HYPERCHLORAEMIA [None]
  - HYPERNATRAEMIA [None]
  - PNEUMONITIS [None]
